FAERS Safety Report 7205983-2 (Version None)
Quarter: 2011Q1

REPORT INFORMATION
  Report Type: 
  Country: None (occurrence: None)
  Receive Date: 20110103
  Receipt Date: 20101222
  Transmission Date: 20110831
  Serious: No
  Sender: FDA-Public Use
  Company Number: US-BIOGENIDEC-2010BI044914

PATIENT
  Age: 54 Year
  Sex: Female

DRUGS (2)
  1. TYSABRI [Suspect]
     Route: 042
     Dates: start: 20090713, end: 20100401
  2. TYSABRI [Suspect]
     Indication: MULTIPLE SCLEROSIS
     Route: 042
     Dates: start: 20101025

REACTIONS (8)
  - ASTHENIA [None]
  - FATIGUE [None]
  - MYALGIA [None]
  - MUSCLE SPASMS [None]
  - HEADACHE [None]
  - DIARRHOEA [None]
  - BURNING SENSATION [None]
  - NECK PAIN [None]
